FAERS Safety Report 15785332 (Version 1)
Quarter: 2018Q4

REPORT INFORMATION
  Report Type: Spontaneous
  Country: US (occurrence: US)
  Receive Date: 20181228
  Receipt Date: 20181228
  Transmission Date: 20190205
  Serious: Yes (Hospitalization)
  Sender: FDA-Public Use
  Company Number: None

PATIENT

DRUGS (1)
  1. ACTIVASE [Suspect]
     Active Substance: ALTEPLASE

REACTIONS (3)
  - Transcription medication error [None]
  - Wrong product administered [None]
  - Product preparation issue [None]
